FAERS Safety Report 15364924 (Version 2)
Quarter: 2018Q4

REPORT INFORMATION
  Report Type: Spontaneous
  Country: AU (occurrence: AU)
  Receive Date: 20180910
  Receipt Date: 20181017
  Transmission Date: 20190204
  Serious: Yes (Other)
  Sender: FDA-Public Use
  Company Number: AU-AMGEN-AUSSP2018123105

PATIENT
  Age: 74 Year
  Sex: Female
  Weight: 49 kg

DRUGS (2)
  1. PROLIA [Suspect]
     Active Substance: DENOSUMAB
     Indication: SPINAL CORD COMPRESSION
  2. PROLIA [Suspect]
     Active Substance: DENOSUMAB
     Indication: OSTEOPENIA
     Dosage: UNK
     Route: 058
     Dates: start: 201310

REACTIONS (4)
  - Off label use [Unknown]
  - Hip fracture [Unknown]
  - Pubis fracture [Unknown]
  - Fall [Unknown]

NARRATIVE: CASE EVENT DATE: 20160117
